FAERS Safety Report 6407825-1 (Version None)
Quarter: 2009Q4

REPORT INFORMATION
  Report Type: 
  Country: None (occurrence: None)
  Receive Date: 20091015
  Receipt Date: 20091008
  Transmission Date: 20100525
  Serious: Yes (Hospitalization)
  Sender: FDA-Public Use
  Company Number: 401423

PATIENT
  Age: 75 Year
  Sex: Female

DRUGS (7)
  1. HEPARIN SODIUM [Suspect]
     Indication: THROMBOSIS PROPHYLAXIS
     Dosage: 5000 UNIT(S), 2 DAY, SUBCNTARIEOUS
     Route: 058
  2. ASPIRIN [Concomitant]
  3. (ATORVASTTTIN) [Concomitant]
  4. RAMIPRIL [Concomitant]
  5. CARVEDILOL [Concomitant]
  6. (FRUSEMIDE /00032601/) [Concomitant]
  7. (NOVOMIX 30  /02607201/) [Concomitant]

REACTIONS (5)
  - CARDIAC FAILURE CONGESTIVE [None]
  - DYSLIPIDAEMIA [None]
  - FALL [None]
  - HYPERKALAEMIA [None]
  - TYPE 2 DIABETES MELLITUS [None]
